FAERS Safety Report 22170815 (Version 3)
Quarter: 2023Q2

REPORT INFORMATION
  Report Type: Spontaneous
  Country: GB (occurrence: GB)
  Receive Date: 20230404
  Receipt Date: 20230426
  Transmission Date: 20230722
  Serious: Yes (Other)
  Sender: FDA-Public Use
  Company Number: GB-Accord-306496

PATIENT
  Age: 33 Year
  Sex: Female

DRUGS (12)
  1. CISPLATIN [Suspect]
     Active Substance: CISPLATIN
     Indication: Choriocarcinoma
     Dosage: ON DAYS 1 AND 2
  2. ETOPOSIDE [Suspect]
     Active Substance: ETOPOSIDE
     Indication: Choriocarcinoma
     Dosage: ON DAYS 1 AND 2
  3. METHOTREXATE [Suspect]
     Active Substance: METHOTREXATE
     Indication: Gestational trophoblastic tumour
     Dosage: HIGHER DOSE- ON DAY 8
  4. DACTINOMYCIN [Suspect]
     Active Substance: DACTINOMYCIN
     Indication: Gestational trophoblastic tumour
     Dosage: ON DAY 8
  5. METHOTREXATE [Suspect]
     Active Substance: METHOTREXATE
     Indication: Metastases to meninges
     Dosage: HIGHER DOSE- ON DAY 8
  6. CISPLATIN [Suspect]
     Active Substance: CISPLATIN
     Indication: Choriocarcinoma
     Dosage: ON DAYS 1
  7. ETOPOSIDE [Suspect]
     Active Substance: ETOPOSIDE
     Indication: Choriocarcinoma
     Dosage: ON DAYS 8
  8. DACTINOMYCIN [Suspect]
     Active Substance: DACTINOMYCIN
     Indication: Metastases to meninges
     Dosage: ON DAY 8
  9. CISPLATIN [Suspect]
     Active Substance: CISPLATIN
     Indication: Metastases to meninges
     Dosage: ON DAYS 1 AND 2
  10. ETOPOSIDE [Suspect]
     Active Substance: ETOPOSIDE
     Indication: Metastases to meninges
     Dosage: ON DAYS 1 AND 2
  11. ETOPOSIDE [Suspect]
     Active Substance: ETOPOSIDE
     Indication: Metastases to lung
     Dosage: ON DAYS 1 AND 2
  12. CISPLATIN [Suspect]
     Active Substance: CISPLATIN
     Indication: Metastases to lung
     Dosage: ON DAYS 1 AND 2

REACTIONS (7)
  - Lacunar infarction [Recovered/Resolved]
  - Cerebral haemorrhage [Recovered/Resolved]
  - Off label use [Unknown]
  - Metastases to meninges [Recovering/Resolving]
  - Tumour embolism [Recovering/Resolving]
  - Drug tolerance decreased [Unknown]
  - Toxicity to various agents [Unknown]
